FAERS Safety Report 6804565-1 (Version None)
Quarter: 2010Q2

REPORT INFORMATION
  Report Type: 
  Country: None (occurrence: None)
  Receive Date: 20100628
  Receipt Date: 20070419
  Transmission Date: 20101027
  Serious: Yes (Other)
  Sender: FDA-Public Use
  Company Number: US-PFIZER INC-2007025467

PATIENT
  Sex: Male
  Weight: 65.8 kg

DRUGS (9)
  1. SUTENT [Suspect]
     Indication: RENAL CELL CARCINOMA
     Route: 048
     Dates: start: 20060101
  2. SYNTHROID [Concomitant]
  3. ZOCOR [Concomitant]
  4. NORVASC [Concomitant]
  5. CHONDROITIN [Concomitant]
  6. ATENOLOL [Concomitant]
  7. LORTAB [Concomitant]
  8. NEXIUM [Concomitant]
  9. PROMETHAZINE [Concomitant]

REACTIONS (6)
  - DIARRHOEA [None]
  - DISEASE PROGRESSION [None]
  - DRY MOUTH [None]
  - FATIGUE [None]
  - ORAL PAIN [None]
  - RENAL CELL CARCINOMA [None]
